FAERS Safety Report 22371686 (Version 9)
Quarter: 2023Q4

REPORT INFORMATION
  Report Type: Spontaneous
  Country: US (occurrence: US)
  Receive Date: 20230526
  Receipt Date: 20231121
  Transmission Date: 20240109
  Serious: No
  Sender: FDA-Public Use
  Company Number: US-PFIZER INC-PV202300091723

PATIENT
  Age: 73 Year
  Sex: Female

DRUGS (2)
  1. IBRANCE [Suspect]
     Active Substance: PALBOCICLIB
     Indication: Breast cancer
     Dosage: 125 MG, CYCLIC (ONCE A DAY, FOR 3 WEEKS)
     Dates: start: 20230530
  2. ANASTROZOLE [Concomitant]
     Active Substance: ANASTROZOLE
     Dosage: 1 MG, 1X/DAY

REACTIONS (19)
  - Neoplasm recurrence [Unknown]
  - Malaise [Unknown]
  - Musculoskeletal stiffness [Unknown]
  - Feeling abnormal [Unknown]
  - Fatigue [Unknown]
  - Pyrexia [Unknown]
  - Hypersensitivity [Unknown]
  - Pruritus [Unknown]
  - Gastrointestinal disorder [Unknown]
  - Emotional disorder [Unknown]
  - Abdominal discomfort [Recovering/Resolving]
  - Sexual dysfunction [Not Recovered/Not Resolved]
  - Constipation [Unknown]
  - Gait disturbance [Unknown]
  - Joint dislocation [Unknown]
  - Eating disorder [Unknown]
  - Product taste abnormal [Unknown]
  - Nausea [Unknown]
  - Diarrhoea [Unknown]
